FAERS Safety Report 7981699-X (Version None)
Quarter: 2011Q4

REPORT INFORMATION
  Report Type: 
  Country: None (occurrence: None)
  Receive Date: 20111215
  Receipt Date: 20111208
  Transmission Date: 20120403
  Serious: Yes (Other)
  Sender: FDA-Public Use
  Company Number: US-JNJFOC-20111204090

PATIENT
  Sex: Female
  Weight: 81.65 kg

DRUGS (4)
  1. MAXALT [Concomitant]
     Indication: MIGRAINE
     Dosage: AS NEEDED
     Route: 048
     Dates: start: 20030101
  2. LYRICA [Concomitant]
     Indication: FIBROMYALGIA
     Dosage: 4 PILLS DAILY
     Route: 048
     Dates: start: 20030101
  3. TRAMADOL HCL [Suspect]
     Indication: PAIN
     Dosage: 300 MG IN 24 HOURS AS NEEDED
     Route: 048
     Dates: start: 20040101
  4. AMBIEN [Concomitant]
     Indication: SLEEP DISORDER
     Dosage: 12 MG IN 24 HOURS
     Route: 048
     Dates: start: 20010101

REACTIONS (2)
  - RHEUMATOID ARTHRITIS [None]
  - PSORIATIC ARTHROPATHY [None]
